FAERS Safety Report 24062819 (Version 1)
Quarter: 2024Q3

REPORT INFORMATION
  Report Type: Spontaneous
  Country: US (occurrence: US)
  Receive Date: 20240709
  Receipt Date: 20240709
  Transmission Date: 20241016
  Serious: Yes (Hospitalization, Other)
  Sender: CIPLA
  Company Number: US-CIPLA LTD.-2024US06945

PATIENT

DRUGS (6)
  1. ALBUTEROL [Suspect]
     Active Substance: ALBUTEROL
     Indication: Empyema
     Dosage: UNK
     Dates: start: 2014
  2. ALBUTEROL [Suspect]
     Active Substance: ALBUTEROL
     Indication: Chronic obstructive pulmonary disease
     Dosage: 2 PUFFS FOR EVERY 4 HOURS BUT IF PATIENT GETS PANIC ATTACKS OR WHEN COULD NOT BREATHE THEN PATIENT C
     Dates: start: 202405
  3. ALBUTEROL [Suspect]
     Active Substance: ALBUTEROL
     Indication: Panic attack
  4. ALBUTEROL [Suspect]
     Active Substance: ALBUTEROL
     Indication: Asthma
  5. SYMBICORT [Concomitant]
     Active Substance: BUDESONIDE\FORMOTEROL FUMARATE DIHYDRATE
     Indication: Product used for unknown indication
     Dosage: UNK
     Route: 065
  6. ALBUTEROL [Concomitant]
     Active Substance: ALBUTEROL
     Indication: Product used for unknown indication
     Dosage: UNK
     Route: 065

REACTIONS (6)
  - Respiratory failure [Recovered/Resolved]
  - Coma [Recovered/Resolved]
  - Paralysis [Recovered/Resolved]
  - Device delivery system issue [Unknown]
  - Product quality issue [Unknown]
  - Product substitution issue [Unknown]

NARRATIVE: CASE EVENT DATE: 20230101
